FAERS Safety Report 17318204 (Version 1)
Quarter: 2020Q1

REPORT INFORMATION
  Report Type: Spontaneous
  Country: ES (occurrence: ES)
  Receive Date: 20200124
  Receipt Date: 20200124
  Transmission Date: 20200409
  Serious: Yes (Hospitalization)
  Sender: FDA-Public Use
  Company Number: ES-BAUSCH-BL-2020-001492

PATIENT
  Age: 90 Year
  Sex: Female

DRUGS (4)
  1. MORFINA [Interacting]
     Active Substance: MORPHINE HYDROCHLORIDE
     Indication: BACK PAIN
     Dosage: MST 20MG DAY
     Route: 048
     Dates: start: 20190812, end: 20190816
  2. MYSOLINE [Suspect]
     Active Substance: PRIMIDONE
     Indication: PRODUCT USED FOR UNKNOWN INDICATION
     Dosage: 1-0-1 (100 TABLETS)
     Route: 048
     Dates: start: 20120629
  3. MIRTAZAPINA [Interacting]
     Active Substance: MIRTAZAPINE
     Indication: INSOMNIA
     Dosage: 0.5 AT COST (30 TABLETS)
     Route: 048
     Dates: start: 20190730, end: 20190818
  4. ZYTRAM [Interacting]
     Active Substance: TRAMADOL HYDROCHLORIDE
     Indication: PRODUCT USED FOR UNKNOWN INDICATION
     Dosage: 1-0-1
     Route: 048
     Dates: start: 20171107, end: 20190818

REACTIONS (1)
  - Confusional state [Recovered/Resolved]

NARRATIVE: CASE EVENT DATE: 20190816
